FAERS Safety Report 7321925-3 (Version None)
Quarter: 2011Q1

REPORT INFORMATION
  Report Type: 
  Country: None (occurrence: None)
  Receive Date: 20110228
  Receipt Date: 20110221
  Transmission Date: 20110831
  Serious: Yes (Hospitalization)
  Sender: FDA-Public Use
  Company Number: US-ASTRAZENECA-2011SE09653

PATIENT
  Age: 45 Year
  Sex: Male

DRUGS (5)
  1. COUMADIN [Concomitant]
  2. SYNTHROID [Concomitant]
  3. CERTRALINE [Concomitant]
  4. SEROQUEL XR [Suspect]
     Indication: INSOMNIA
     Route: 048
     Dates: start: 20090101
  5. OXYGEN [Concomitant]
     Dosage: FREQUENCY PRN

REACTIONS (1)
  - LUNG INFECTION [None]
